FAERS Safety Report 5388483-4 (Version None)
Quarter: 2007Q3

REPORT INFORMATION
  Report Type: 
  Country: None (occurrence: None)
  Receive Date: 20070716
  Receipt Date: 20070704
  Transmission Date: 20080115
  Serious: Yes (Disabling, Other)
  Sender: FDA-Public Use
  Company Number: DE-PFIZER INC-2007027459

PATIENT
  Age: 70 Year
  Sex: Male

DRUGS (11)
  1. REVATIO [Suspect]
     Route: 048
     Dates: start: 20070101, end: 20070501
  2. PLAVIX [Concomitant]
     Route: 048
  3. ATACAND [Concomitant]
     Route: 048
  4. ALLOPURINOL [Concomitant]
     Route: 048
  5. SOSTRIL [Concomitant]
     Route: 048
  6. SANDIMMUNE [Concomitant]
     Route: 048
  7. TORSEMIDE [Concomitant]
     Route: 048
  8. MAGNESIUM SULFATE [Concomitant]
     Route: 048
  9. TAVOR [Concomitant]
     Route: 048
  10. ADALAT [Concomitant]
     Route: 048
  11. NEXIUM [Concomitant]
     Route: 048

REACTIONS (3)
  - DISABILITY [None]
  - MACULAR DEGENERATION [None]
  - VISUAL ACUITY REDUCED [None]
